FAERS Safety Report 5923240-9 (Version None)
Quarter: 2008Q4

REPORT INFORMATION
  Report Type: 
  Country: None (occurrence: None)
  Receive Date: 20081020
  Receipt Date: 20081016
  Transmission Date: 20090506
  Serious: Yes (Hospitalization)
  Sender: FDA-Public Use
  Company Number: JP-BRISTOL-MYERS SQUIBB COMPANY-14315170

PATIENT
  Age: 79 Year
  Sex: Male

DRUGS (10)
  1. GATIFLOXACIN [Suspect]
     Indication: BRONCHITIS
     Route: 048
     Dates: start: 20080814, end: 20080815
  2. MUCODYNE [Concomitant]
     Dosage: FORMULATION - TABLET.
     Route: 048
     Dates: start: 20080814, end: 20080815
  3. IBUPROFEN [Concomitant]
     Dosage: FORMULATION - TABLET.
     Route: 048
     Dates: start: 20080814, end: 20080815
  4. DAONIL [Concomitant]
     Dosage: FORMULATION - TABLET.
     Route: 048
     Dates: start: 20040327, end: 20080817
  5. COLDRIN [Concomitant]
     Dosage: FORMULATION - TABLET.
     Route: 048
     Dates: start: 20080814, end: 20080815
  6. NICERGOLINE [Concomitant]
     Dosage: FORMULATION - TABLET.
     Route: 048
     Dates: start: 20050323
  7. TENORMIN [Concomitant]
     Dosage: FORMULATION - TABLET.
     Route: 048
     Dates: start: 20041120
  8. PANALDINE [Concomitant]
     Dosage: FORMULATION - TABLET.
     Route: 048
     Dates: start: 20040327
  9. TRICHLORMETHIAZIDE [Concomitant]
     Dosage: FORMULATION - TABLET.
     Route: 048
     Dates: start: 20070907
  10. MARZULENE-S [Concomitant]
     Dosage: FORMULATION - GRANULES.
     Route: 048
     Dates: start: 20041120

REACTIONS (1)
  - HYPOGLYCAEMIA [None]
